FAERS Safety Report 5011850-5 (Version None)
Quarter: 2006Q2

REPORT INFORMATION
  Report Type: 
  Country: None (occurrence: None)
  Receive Date: 20060524
  Receipt Date: 20060524
  Transmission Date: 20061013
  Serious: Yes (Hospitalization)
  Sender: FDA-Public Use
  Company Number: None

PATIENT
  Age: 57 Year
  Sex: Male
  Weight: 106 kg

DRUGS (7)
  1. TRIAMTERENE AND HYDROCHLOROTHIAZIDE [Suspect]
     Indication: BLOOD PRESSURE
     Dosage: 1 CAPSULE QAM PO
     Route: 048
     Dates: start: 20040728, end: 20060107
  2. LISINOPRIL [Suspect]
     Indication: BLOOD PRESSURE
     Dosage: 1 TABLET DAILY PO
     Route: 048
     Dates: start: 20040728
  3. INDOMETHACIN [Concomitant]
  4. FLUOXETINE HCL [Concomitant]
  5. GOSERELIN ACETATE [Concomitant]
  6. SIMVASTATIN [Concomitant]
  7. DOXAZOSIN MESYLATE [Concomitant]

REACTIONS (4)
  - FALL [None]
  - HYPONATRAEMIA [None]
  - ORTHOSTATIC HYPOTENSION [None]
  - RENAL FAILURE ACUTE [None]
